FAERS Safety Report 7206888-3 (Version None)
Quarter: 2011Q1

REPORT INFORMATION
  Report Type: 
  Country: None (occurrence: None)
  Receive Date: 20110103
  Receipt Date: 20101221
  Transmission Date: 20110831
  Serious: Yes (Death)
  Sender: FDA-Public Use
  Company Number: JP-SANOFI-AVENTIS-2010SA076870

PATIENT
  Age: 52 Year
  Sex: Male

DRUGS (13)
  1. FLUOROURACIL [Suspect]
     Indication: COLON CANCER METASTATIC
     Route: 040
     Dates: start: 20090728, end: 20090730
  2. OMEPRAL [Concomitant]
     Dates: start: 20090805
  3. NAUZELIN [Concomitant]
     Dates: start: 20090728
  4. CALCIUM LEVOFOLINATE [Suspect]
     Indication: COLON CANCER METASTATIC
     Route: 041
     Dates: start: 20090728, end: 20090728
  5. OXALIPLATIN [Suspect]
     Indication: COLON CANCER METASTATIC
     Route: 041
     Dates: start: 20090728, end: 20090728
  6. KYTRIL [Concomitant]
     Dates: start: 20090728, end: 20090728
  7. DEPAS [Concomitant]
     Dates: start: 20090709, end: 20090805
  8. AVASTIN [Suspect]
     Indication: COLON CANCER METASTATIC
     Route: 041
     Dates: start: 20090728, end: 20090728
  9. LOXONIN [Concomitant]
     Dates: start: 20090710, end: 20090805
  10. PRIMPERAN TAB [Concomitant]
     Dates: start: 20090728
  11. OLMETEC [Concomitant]
     Dates: start: 20090805
  12. DEXAMETHASONE [Concomitant]
     Dates: start: 20090728, end: 20090728
  13. MAGLAX [Concomitant]
     Dates: start: 20090710, end: 20090805

REACTIONS (9)
  - TACHYCARDIA [None]
  - DECREASED APPETITE [None]
  - HEPATIC ENZYME INCREASED [None]
  - PERITONITIS [None]
  - DELIRIUM [None]
  - PLEURAL EFFUSION [None]
  - INTESTINAL PERFORATION [None]
  - NAUSEA [None]
  - CONSTIPATION [None]
